FAERS Safety Report 21594606 (Version 3)
Quarter: 2022Q4

REPORT INFORMATION
  Report Type: Spontaneous
  Country: PT (occurrence: PT)
  Receive Date: 20221115
  Receipt Date: 20221202
  Transmission Date: 20230113
  Serious: Yes (Hospitalization, Other)
  Sender: FDA-Public Use
  Company Number: PT-BALDACCIPT-2022046

PATIENT
  Age: 68 Year
  Sex: Female

DRUGS (3)
  1. MONTELUKAST SODIUM [Suspect]
     Active Substance: MONTELUKAST SODIUM
     Indication: Product used for unknown indication
     Dosage: UNK
  2. FLUOXETINE [Suspect]
     Active Substance: FLUOXETINE HYDROCHLORIDE
     Indication: Product used for unknown indication
     Dosage: UNK
  3. PREDNISOLONE [Concomitant]
     Active Substance: PREDNISOLONE
     Dosage: 60 MILLIGRAM, QD

REACTIONS (1)
  - Eosinophilic pneumonia acute [Recovered/Resolved]
